FAERS Safety Report 5033894-X (Version None)
Quarter: 2006Q2

REPORT INFORMATION
  Report Type: 
  Country: None (occurrence: None)
  Receive Date: 20060623
  Receipt Date: 20060615
  Transmission Date: 20061013
  Serious: Yes (Hospitalization, Other)
  Sender: FDA-Public Use
  Company Number: US-ABBOTT-06P-163-0336069-00

PATIENT
  Sex: Female

DRUGS (10)
  1. HUMIRA [Suspect]
     Indication: RHEUMATOID ARTHRITIS
     Route: 058
     Dates: start: 20050101, end: 20050301
  2. HUMIRA [Suspect]
     Route: 058
     Dates: start: 20050301, end: 20050701
  3. HUMIRA [Suspect]
     Route: 058
     Dates: start: 20050701, end: 20060605
  4. PREDNISONE [Concomitant]
     Indication: RHEUMATOID ARTHRITIS
     Route: 048
  5. METHOTREXATE [Concomitant]
     Indication: RHEUMATOID ARTHRITIS
     Route: 048
  6. GABAPENTIN [Concomitant]
     Indication: RHEUMATOID ARTHRITIS
     Route: 048
  7. NOVOLOG [Concomitant]
     Indication: DIABETES MELLITUS
     Dosage: 1 INJECTION/3 IN 1 DAY
     Route: 058
  8. LANTUS [Concomitant]
     Indication: DIABETES MELLITUS
     Dosage: 1 INJECTION/2 IN 1 DAY
     Route: 058
     Dates: start: 20060601
  9. UNSPECIFIED CARDIAC MEDICATIONS [Concomitant]
     Indication: CARDIAC DISORDER
  10. UNSPECIFIED MEDICATIONS [Concomitant]
     Indication: DRUG USE FOR UNKNOWN INDICATION

REACTIONS (11)
  - CONFUSIONAL STATE [None]
  - CORONARY ARTERY OCCLUSION [None]
  - DIARRHOEA [None]
  - DIFFICULTY IN WALKING [None]
  - DIZZINESS [None]
  - HYDROCEPHALUS [None]
  - HYPOGLYCAEMIA [None]
  - INCOHERENT [None]
  - LOSS OF CONSCIOUSNESS [None]
  - MUSCULOSKELETAL STIFFNESS [None]
  - VOMITING [None]
